FAERS Safety Report 16683582 (Version 1)
Quarter: 2019Q3

REPORT INFORMATION
  Report Type: Spontaneous
  Country: US (occurrence: US)
  Receive Date: 20190808
  Receipt Date: 20190808
  Transmission Date: 20191004
  Serious: No
  Sender: FDA-Public Use
  Company Number: US-ALLERGAN-1917396US

PATIENT
  Sex: Male

DRUGS (1)
  1. ANDRODERM [Suspect]
     Active Substance: TESTOSTERONE
     Indication: ANDROGEN REPLACEMENT THERAPY
     Dosage: 1 DF
     Route: 062

REACTIONS (4)
  - Blood testosterone decreased [Unknown]
  - Drug ineffective [Unknown]
  - Product adhesion issue [Unknown]
  - Inappropriate schedule of product administration [Unknown]
